FAERS Safety Report 10759157 (Version 3)
Quarter: 2015Q1

REPORT INFORMATION
  Report Type: Spontaneous
  Country: FR (occurrence: FR)
  Receive Date: 20150203
  Receipt Date: 20150218
  Transmission Date: 20150721
  Serious: Yes (Other)
  Sender: FDA-Public Use
  Company Number: FR-PFIZER INC-2015042540

PATIENT
  Age: 44 Year
  Sex: Male
  Weight: 87 kg

DRUGS (8)
  1. REYATAZ [Suspect]
     Active Substance: ATAZANAVIR SULFATE
     Indication: HIV INFECTION
     Dosage: 300 MG, 1X/DAY
     Route: 048
     Dates: start: 20081219, end: 201501
  2. TRUVADA [Suspect]
     Active Substance: EMTRICITABINE\TENOFOVIR DISOPROXIL FUMARATE
     Indication: HIV INFECTION
     Dosage: 1 DF, 1X/DAY
     Route: 048
     Dates: start: 20081219, end: 201501
  3. NORVIR [Suspect]
     Active Substance: RITONAVIR
     Indication: HIV INFECTION
     Dosage: 100 MG, 1X/DAY
     Route: 048
     Dates: start: 20081219, end: 201501
  4. TAVANIC [Suspect]
     Active Substance: LEVOFLOXACIN
     Indication: LYMPHADENOPATHY
     Dosage: UNK
     Dates: start: 2014, end: 2014
  5. CRESTOR [Suspect]
     Active Substance: ROSUVASTATIN CALCIUM
     Indication: HYPERCHOLESTEROLAEMIA
     Dosage: 5 MG, 1X/DAY
     Dates: start: 20131021
  6. IZILOX [Suspect]
     Active Substance: MOXIFLOXACIN HYDROCHLORIDE
     Dosage: UNK
     Dates: start: 20140425, end: 2014
  7. ZITHROMAX [Suspect]
     Active Substance: AZITHROMYCIN DIHYDRATE
     Dosage: UNK
     Dates: start: 20140425
  8. ANSATIPINE [Suspect]
     Active Substance: RIFABUTIN
     Dosage: UNK
     Dates: start: 20140425

REACTIONS (8)
  - Chromaturia [Recovered/Resolved]
  - Thrombocytopenia [Recovered/Resolved]
  - Insomnia [Unknown]
  - Leukopenia [Recovered/Resolved]
  - Uveitis [Recovering/Resolving]
  - Arthralgia [Unknown]
  - Tendon pain [Unknown]
  - Visual field defect [Unknown]

NARRATIVE: CASE EVENT DATE: 20140502
